FAERS Safety Report 13888054 (Version 2)
Quarter: 2017Q4

REPORT INFORMATION
  Report Type: Spontaneous
  Country: US (occurrence: US)
  Receive Date: 20170821
  Receipt Date: 20171211
  Transmission Date: 20180320
  Serious: Yes (Hospitalization, Other)
  Sender: FDA-Public Use
  Company Number: US-PFIZER INC-2017358653

PATIENT
  Age: 60 Year
  Sex: Female

DRUGS (8)
  1. HYDROMORPHONE [Concomitant]
     Active Substance: HYDROMORPHONE
     Dosage: 150 MORPHINE EQUIVALENTS (OME)
     Route: 042
  2. PREDNISONE. [Concomitant]
     Active Substance: PREDNISONE
     Indication: MYOSITIS
     Dosage: UNK
  3. METHOTREXATE. [Concomitant]
     Active Substance: METHOTREXATE
     Indication: MYOSITIS
     Dosage: UNK
  4. AZATHIOPRINE. [Concomitant]
     Active Substance: AZATHIOPRINE
     Indication: MYOSITIS
     Dosage: UNK
  5. HUMAN IMMUNOGLOBULIN [Concomitant]
     Active Substance: HUMAN IMMUNOGLOBULIN G
     Indication: MYOSITIS
     Dosage: UNK
     Route: 042
  6. COCAINE [Concomitant]
     Active Substance: COCAINE
     Indication: ULCER
     Dosage: UNK
     Route: 061
  7. OXYCONTIN [Concomitant]
     Active Substance: OXYCODONE HYDROCHLORIDE
     Dosage: 300 MORPHINE EQUIVALENTS (OME) A DAY
     Route: 048
  8. LIDOCAINE HCL [Suspect]
     Active Substance: LIDOCAINE HYDROCHLORIDE
     Indication: NEURALGIA
     Dosage: LIDOCAINE INFUSION 0.5 MG/KG/H AND TITRATED TO 2 MG/KG/H

REACTIONS (1)
  - Seizure [Unknown]
